FAERS Safety Report 7954864-5 (Version None)
Quarter: 2011Q4

REPORT INFORMATION
  Report Type: 
  Country: None (occurrence: None)
  Receive Date: 20111202
  Receipt Date: 20111129
  Transmission Date: 20120403
  Serious: Yes (Other)
  Sender: FDA-Public Use
  Company Number: US-CEPHALON-2011004783

PATIENT
  Age: 74 Year
  Sex: Male

DRUGS (10)
  1. AMIODARONE HCL [Concomitant]
  2. TREANDA [Suspect]
     Route: 042
     Dates: start: 20110510, end: 20110511
  3. LEVOTHYROXINE SODIUM [Concomitant]
  4. TERAZOSIN HCL [Concomitant]
  5. LISINOPRIL [Concomitant]
  6. NEULASTA [Concomitant]
  7. ASPIRIN [Concomitant]
  8. TREANDA [Suspect]
     Indication: NON-HODGKIN'S LYMPHOMA
     Route: 042
     Dates: start: 20110412, end: 20110413
  9. TREANDA [Suspect]
     Route: 042
     Dates: start: 20110614, end: 20110615
  10. RITUXAN [Concomitant]
     Indication: NON-HODGKIN'S LYMPHOMA

REACTIONS (1)
  - PANCYTOPENIA [None]
